FAERS Safety Report 16133588 (Version 1)
Quarter: 2019Q1

REPORT INFORMATION
  Report Type: Spontaneous
  Country: GB (occurrence: GB)
  Receive Date: 20190329
  Receipt Date: 20190329
  Transmission Date: 20190418
  Serious: Yes (Death)
  Sender: FDA-Public Use
  Company Number: GB-ACCORD-116452

PATIENT
  Sex: Female

DRUGS (6)
  1. FLUOROURACIL. [Suspect]
     Active Substance: FLUOROURACIL
     Indication: HER-2 POSITIVE BREAST CANCER
     Dosage: ON DAY 1 OF CYCLE 5-8,ALSO TAKEN 500 MG/M2 I V BOLUS
     Route: 042
  2. EPIRUBICIN [Suspect]
     Active Substance: EPIRUBICIN
     Indication: HER-2 POSITIVE BREAST CANCER
     Dosage: ON DAY 1 OF CYCLE 5-8
     Route: 040
  3. CYCLOPHOSPHAMIDE/CYCLOPHOSPHAMIDE MONOHYDRATE [Suspect]
     Active Substance: CYCLOPHOSPHAMIDE
     Indication: HER-2 POSITIVE BREAST CANCER
     Route: 040
  4. HERCEPTIN [Suspect]
     Active Substance: TRASTUZUMAB
     Indication: HER-2 POSITIVE BREAST CANCER
     Dosage: LOADING DOSE ON DAY 1 OF CYCLE 1?EIGHT CYCLES, EACH LASTING 3 WEEKS, FOR 24 WEEKS
     Route: 042
  5. DOCETAXEL. [Suspect]
     Active Substance: DOCETAXEL
     Indication: HER-2 POSITIVE BREAST CANCER
     Dosage: ON DAY 1 OF CYCLES 1-4
     Route: 042
  6. HERCEPTIN [Suspect]
     Active Substance: TRASTUZUMAB
     Indication: PRODUCT USED FOR UNKNOWN INDICATION
     Dosage: ON DAY 1 OF CYCLE 2-8?EIGHT CYCLES, EACH LASTING 3 WEEKS, FOR 24 WEEKS
     Route: 042

REACTIONS (1)
  - Acute myocardial infarction [Fatal]
